FAERS Safety Report 4279758-0 (Version None)
Quarter: 2004Q1

REPORT INFORMATION
  Report Type: 
  Country: None (occurrence: None)
  Receive Date: 20040123
  Receipt Date: 20040121
  Transmission Date: 20041129
  Serious: Yes (Hospitalization)
  Sender: FDA-Public Use
  Company Number: 200310064BYL

PATIENT
  Age: 60 Year
  Sex: Male
  Weight: 74 kg

DRUGS (6)
  1. CIPROFLOXACIN [Suspect]
     Indication: INTERSTITIAL LUNG DISEASE
     Dosage: 600 MG, TOTAL DAILY, INTRAVENOUS DRIP
     Route: 041
     Dates: start: 20030214, end: 20030217
  2. MEROPEN [Concomitant]
  3. PENTICILLIN [Concomitant]
  4. MUCODYNE [Concomitant]
  5. DASEN [Concomitant]
  6. CLARITHROMYCIN [Concomitant]

REACTIONS (4)
  - INTERSTITIAL LUNG DISEASE [None]
  - PNEUMONIA [None]
  - PO2 DECREASED [None]
  - RESPIRATORY DISORDER [None]
